FAERS Safety Report 20947217 (Version 1)
Quarter: 2022Q2

REPORT INFORMATION
  Report Type: Spontaneous
  Country: US (occurrence: US)
  Receive Date: 20220610
  Receipt Date: 20220610
  Transmission Date: 20220721
  Serious: No
  Sender: FDA-Public Use
  Company Number: US-CELGENE-USA-20220107430

PATIENT
  Age: 69 Year
  Sex: Female

DRUGS (1)
  1. REVLIMID [Suspect]
     Active Substance: LENALIDOMIDE
     Indication: Plasma cell myeloma
     Dosage: FORM STRENGTH : 25 ?DOSE: 25 MILLIGRAM FREQUENCY CYCLE: 1 CAPSULE EVERY DAY FOR 14 DAYS OF 21 DAY CY
     Route: 048
     Dates: start: 20211221

REACTIONS (1)
  - Constipation [Unknown]
